FAERS Safety Report 6219238-6 (Version None)
Quarter: 2009Q2

REPORT INFORMATION
  Report Type: 
  Country: None (occurrence: None)
  Receive Date: 20090605
  Receipt Date: 20090605
  Transmission Date: 20091009
  Serious: No
  Sender: FDA-Public Use
  Company Number: None

PATIENT
  Sex: Male
  Weight: 110.45 kg

DRUGS (1)
  1. CISPLATIN [Suspect]
     Dosage: 171 MG
     Dates: end: 20090112

REACTIONS (1)
  - BLOOD MAGNESIUM DECREASED [None]
